FAERS Safety Report 20740146 (Version 15)
Quarter: 2024Q2

REPORT INFORMATION
  Report Type: Spontaneous
  Country: US (occurrence: US)
  Receive Date: 20220422
  Receipt Date: 20240523
  Transmission Date: 20240716
  Serious: Yes (Other)
  Sender: FDA-Public Use
  Company Number: US-PFIZER INC-202200604284

PATIENT
  Age: 67 Year
  Sex: Female

DRUGS (11)
  1. XELJANZ [Suspect]
     Active Substance: TOFACITINIB CITRATE
     Indication: Rheumatoid arthritis
     Dosage: UNK
  2. XELJANZ [Suspect]
     Active Substance: TOFACITINIB CITRATE
     Dosage: 5 MG, 2X/DAY
     Route: 048
     Dates: start: 20220201, end: 202212
  3. XELJANZ [Suspect]
     Active Substance: TOFACITINIB CITRATE
     Dosage: 5 MG, DAILY
     Route: 048
     Dates: start: 202304
  4. XELJANZ [Suspect]
     Active Substance: TOFACITINIB CITRATE
     Dosage: 5 MG, 2X/DAY
     Route: 048
     Dates: start: 20230414
  5. XELJANZ [Suspect]
     Active Substance: TOFACITINIB CITRATE
     Dosage: 5 MG, 1X/DAY
     Route: 048
     Dates: start: 202309
  6. XELJANZ [Suspect]
     Active Substance: TOFACITINIB CITRATE
     Dosage: 5 MG, DAILY
  7. XELJANZ [Suspect]
     Active Substance: TOFACITINIB CITRATE
     Dosage: TAKE 2-5MG TABS BY MOUTH EVERY MON, WED, FRI, SUN. TAKE 1-5MG TAB BY MOUTH EVERY TUE, THUR, SAT
     Route: 048
     Dates: start: 202304
  8. XELJANZ [Suspect]
     Active Substance: TOFACITINIB CITRATE
     Dosage: 1 TABLET ONCE A DAY AND 1 TABLET TWICE A DAY ON ALTERNATING DAYS
  9. PREDNISONE [Concomitant]
     Active Substance: PREDNISONE
     Dosage: 10 MG, 1X/DAY
     Route: 048
  10. PREDNISONE [Concomitant]
     Active Substance: PREDNISONE
     Dosage: 7.5 MG, 1X/DAY (ALTERNATING WITH 5 MG, ONCE DAILY)
     Route: 048
  11. PREDNISONE [Concomitant]
     Active Substance: PREDNISONE
     Dosage: 5 MG, 1X/DAY
     Route: 048

REACTIONS (36)
  - Rectal haemorrhage [Unknown]
  - Internal haemorrhage [Not Recovered/Not Resolved]
  - Rheumatoid arthritis [Unknown]
  - Anaemia [Unknown]
  - Polyp [Recovered/Resolved]
  - Inflammation [Not Recovered/Not Resolved]
  - Condition aggravated [Not Recovered/Not Resolved]
  - Therapeutic product effect incomplete [Not Recovered/Not Resolved]
  - Fatigue [Not Recovered/Not Resolved]
  - Abdominal discomfort [Unknown]
  - Discouragement [Unknown]
  - Depression [Unknown]
  - Blood cholesterol increased [Recovering/Resolving]
  - Malaise [Unknown]
  - Somnolence [Unknown]
  - Pain [Unknown]
  - Arthralgia [Unknown]
  - Pain in extremity [Not Recovered/Not Resolved]
  - Extremity contracture [Unknown]
  - Sleep disorder [Unknown]
  - Inflammation [Unknown]
  - Infection [Unknown]
  - Cholelithiasis [Unknown]
  - Erythema [Unknown]
  - Mammogram abnormal [Unknown]
  - Peripheral swelling [Not Recovered/Not Resolved]
  - Confusional state [Recovered/Resolved]
  - Headache [Recovering/Resolving]
  - Confusional state [Recovered/Resolved]
  - Coordination abnormal [Unknown]
  - Illness [Unknown]
  - Infection [Unknown]
  - Joint lock [Unknown]
  - Condition aggravated [Not Recovered/Not Resolved]
  - Off label use [Unknown]
  - Dizziness [Not Recovered/Not Resolved]

NARRATIVE: CASE EVENT DATE: 20220101
